FAERS Safety Report 8460406 (Version 3)
Quarter: 2012Q4

REPORT INFORMATION
  Report Type: 
  Country: US (occurrence: US)
  Receive Date: 20120315
  Receipt Date: 20121019
  Transmission Date: 20130627
  Serious: Yes (Hospitalization, Other)
  Sender: FDA-Public Use
  Company Number: US-PFIZER INC-2012064695

PATIENT
  Age: 82 Year
  Sex: Female
  Weight: 76 kg

DRUGS (2)
  1. SUTENT [Suspect]
     Indication: BONE NEOPLASM MALIGNANT
     Dosage: 50 mg daily 4 weeks on 2 weeks off
     Route: 048
     Dates: start: 20120201, end: 201204
  2. SUTENT [Suspect]
     Indication: METASTATIC GASTRIC CANCER

REACTIONS (8)
  - Confusional state [Recovered/Resolved]
  - Blood sodium decreased [Unknown]
  - Hypertension [Unknown]
  - Malaise [Recovered/Resolved]
  - Off label use [Unknown]
  - Weight increased [Unknown]
  - Activities of daily living impaired [Unknown]
  - Drug intolerance [Unknown]
